FAERS Safety Report 18696462 (Version 1)
Quarter: 2021Q1

REPORT INFORMATION
  Report Type: Other
  Country: US (occurrence: US)
  Receive Date: 20210104
  Receipt Date: 20210104
  Transmission Date: 20210419
  Serious: No
  Sender: FDA-Public Use
  Company Number: US-ROCHE-2682865

PATIENT
  Age: 50 Year
  Sex: Male

DRUGS (5)
  1. ALTEPLASE. [Suspect]
     Active Substance: ALTEPLASE
     Dosage: 1 MG/HOUR FOR 12 HOURS
     Route: 042
  2. ALTEPLASE. [Suspect]
     Active Substance: ALTEPLASE
     Indication: SHOCK
     Route: 042
  3. LOW MOLECULAR WEIGHT HEPARIN [Concomitant]
     Active Substance: UNSPECIFIED INGREDIENT
  4. ALTEPLASE. [Suspect]
     Active Substance: ALTEPLASE
     Indication: HYPOXIA
     Route: 040
  5. ALTEPLASE. [Suspect]
     Active Substance: ALTEPLASE
     Dosage: 2 MG/HOUR FOR 4 HOURS
     Route: 042

REACTIONS (3)
  - Intentional product use issue [Unknown]
  - No adverse event [Unknown]
  - Off label use [Unknown]
